FAERS Safety Report 6784999-4 (Version None)
Quarter: 2010Q2

REPORT INFORMATION
  Report Type: 
  Country: None (occurrence: None)
  Receive Date: 20100622
  Receipt Date: 20100611
  Transmission Date: 20101027
  Serious: Yes (Other)
  Sender: FDA-Public Use
  Company Number: US-JNJCH-2010011468

PATIENT
  Age: 2 Year
  Sex: Female
  Weight: 10.4 kg

DRUGS (2)
  1. CHILDREN'S BENADRYL ALLERGY [Suspect]
     Indication: PYREXIA
     Dosage: TEXT:THREE TIMES PER DAY
     Route: 048
     Dates: start: 20100415, end: 20100426
  2. TYLENOL [Suspect]
     Indication: DRUG USE FOR UNKNOWN INDICATION
     Dosage: TEXT:UNKNOWN
     Route: 048

REACTIONS (2)
  - PRODUCT QUALITY ISSUE [None]
  - STRABISMUS [None]
